FAERS Safety Report 6027912-X (Version None)
Quarter: 2008Q4

REPORT INFORMATION
  Report Type: 
  Country: None (occurrence: None)
  Receive Date: 20081230
  Receipt Date: 20081208
  Transmission Date: 20090506
  Serious: No
  Sender: FDA-Public Use
  Company Number: 123506

PATIENT
  Age: 71 Year
  Sex: Male
  Weight: 75 kg

DRUGS (13)
  1. PRECEDEX [Suspect]
     Indication: SEDATION
     Dosage: 0.3 MCG/KG/HR, IV
     Route: 042
     Dates: start: 20070827, end: 20070827
  2. PROPOFOL [Concomitant]
  3. FENTANYL [Concomitant]
  4. VECURONIUM BROMIDE [Concomitant]
  5. SEVOFLURANE [Concomitant]
  6. EPHEDRINE HYDROCHLORIDE [Concomitant]
  7. DOPAMINE HYDROCHLORIDE [Concomitant]
  8. FLURBIPROFEN AXETIL [Concomitant]
  9. NAFAMOSTAT MESILATE [Concomitant]
  10. ROPIVACAINE [Concomitant]
  11. SIVELESTAT [Concomitant]
  12. LANSOPRAZOLE [Concomitant]
  13. FRESH FROZEN PLASMA [Concomitant]

REACTIONS (5)
  - ALANINE AMINOTRANSFERASE INCREASED [None]
  - ASPARTATE AMINOTRANSFERASE INCREASED [None]
  - BLOOD ALBUMIN DECREASED [None]
  - CONDITION AGGRAVATED [None]
  - PROTHROMBIN TIME PROLONGED [None]
